FAERS Safety Report 8328717-7 (Version None)
Quarter: 2012Q2

REPORT INFORMATION
  Report Type: 
  Country: None (occurrence: None)
  Receive Date: 20120502
  Receipt Date: 20100823
  Transmission Date: 20120825
  Serious: No
  Sender: FDA-Public Use
  Company Number: US-TEVA-2010004490

PATIENT
  Sex: Female
  Weight: 68.554 kg

DRUGS (3)
  1. NUVIGIL [Suspect]
     Indication: SLEEP APNOEA SYNDROME
     Route: 048
     Dates: start: 20100809, end: 20100822
  2. ZOLOFT [Concomitant]
  3. ZYPREXA [Concomitant]
     Dates: start: 20100701

REACTIONS (3)
  - DEPRESSION [None]
  - OBSESSIVE THOUGHTS [None]
  - DRY MOUTH [None]
